FAERS Safety Report 7899552-9 (Version None)
Quarter: 2011Q4

REPORT INFORMATION
  Report Type: 
  Country: None (occurrence: None)
  Receive Date: 20111107
  Receipt Date: 20110915
  Transmission Date: 20120403
  Serious: No
  Sender: FDA-Public Use
  Company Number: US-AMGEN-USASP2011047686

PATIENT
  Sex: Male

DRUGS (1)
  1. ENBREL [Suspect]
     Indication: RHEUMATOID ARTHRITIS
     Dosage: 50 MG, QWK
     Dates: start: 20110212, end: 20110701

REACTIONS (6)
  - THERAPEUTIC RESPONSE DECREASED [None]
  - INJECTION SITE URTICARIA [None]
  - INJECTION SITE ERYTHEMA [None]
  - RHEUMATOID ARTHRITIS [None]
  - INJECTION SITE RASH [None]
  - INJECTION SITE REACTION [None]
